FAERS Safety Report 13280855 (Version 1)
Quarter: 2017Q1

REPORT INFORMATION
  Report Type: Spontaneous
  Country: US (occurrence: US)
  Receive Date: 20170301
  Receipt Date: 20170301
  Transmission Date: 20170428
  Serious: Yes (Hospitalization)
  Sender: FDA-Public Use
  Company Number: US-ROCHE-1899571

PATIENT
  Sex: Male

DRUGS (20)
  1. HUMALOG [Concomitant]
     Active Substance: INSULIN LISPRO
  2. TRAZODONE [Concomitant]
     Active Substance: TRAZODONE HYDROCHLORIDE
  3. HYDROMORPHONE [Concomitant]
     Active Substance: HYDROMORPHONE
     Dosage: PUMP
     Route: 065
  4. XANAX [Concomitant]
     Active Substance: ALPRAZOLAM
  5. PROZAC [Concomitant]
     Active Substance: FLUOXETINE HYDROCHLORIDE
  6. NEXIUM [Concomitant]
     Active Substance: ESOMEPRAZOLE MAGNESIUM
  7. SIMVASTATIN. [Concomitant]
     Active Substance: SIMVASTATIN
  8. MS CONTIN [Concomitant]
     Active Substance: MORPHINE SULFATE
  9. ASPIRIN. [Concomitant]
     Active Substance: ASPIRIN
  10. GABAPENTIN. [Concomitant]
     Active Substance: GABAPENTIN
  11. CELEBREX [Concomitant]
     Active Substance: CELECOXIB
  12. ESBRIET [Suspect]
     Active Substance: PIRFENIDONE
     Indication: PRODUCT USED FOR UNKNOWN INDICATION
     Route: 048
     Dates: start: 20150916
  13. MIRTAZAPINE. [Concomitant]
     Active Substance: MIRTAZAPINE
  14. FENOFIBRATE. [Concomitant]
     Active Substance: FENOFIBRATE
  15. FISH OIL [Concomitant]
     Active Substance: FISH OIL
  16. METFORMIN [Concomitant]
     Active Substance: METFORMIN HYDROCHLORIDE
     Route: 065
  17. DEXILANT [Concomitant]
     Active Substance: DEXLANSOPRAZOLE
  18. LANTUS [Concomitant]
     Active Substance: INSULIN GLARGINE
  19. VENTOLIN [Concomitant]
     Active Substance: ALBUTEROL SULFATE
     Dosage: INHALER
     Route: 065
  20. MORPHINE ER [Concomitant]
     Active Substance: MORPHINE

REACTIONS (1)
  - Dyspnoea [Unknown]
